FAERS Safety Report 25952887 (Version 1)
Quarter: 2025Q4

REPORT INFORMATION
  Report Type: Spontaneous
  Country: US (occurrence: US)
  Receive Date: 20251023
  Receipt Date: 20251023
  Transmission Date: 20260118
  Serious: Yes (Death, Other)
  Sender: SANOFI AVENTIS
  Company Number: US-DialogSolutions-SAAVPROD-PI830602-C11

PATIENT
  Sex: Male

DRUGS (3)
  1. FLUDARABINE PHOSPHATE [Suspect]
     Active Substance: FLUDARABINE PHOSPHATE
     Indication: Chronic granulomatous disease
     Dosage: 150 MG/M2
  2. ALEMTUZUMAB [Suspect]
     Active Substance: ALEMTUZUMAB
     Indication: Chronic granulomatous disease
     Dosage: 80 MG/M2
  3. MELPHALAN [Suspect]
     Active Substance: MELPHALAN
     Indication: Chronic granulomatous disease
     Dosage: 140 MG/M2

REACTIONS (4)
  - Multiple organ dysfunction syndrome [Fatal]
  - Gastroenteritis adenovirus [Fatal]
  - Off label use [Fatal]
  - Sepsis [Fatal]
